FAERS Safety Report 4330847-1 (Version None)
Quarter: 2004Q1

REPORT INFORMATION
  Report Type: 
  Country: None (occurrence: None)
  Receive Date: 20040331
  Receipt Date: 20040318
  Transmission Date: 20041129
  Serious: Yes (Hospitalization)
  Sender: FDA-Public Use
  Company Number: KDL014850

PATIENT
  Age: 65 Year
  Sex: Female

DRUGS (6)
  1. EPOGEN [Suspect]
     Indication: ANAEMIA
     Dosage: 40000 U,WEEKLY
     Dates: start: 19970101
  2. AXOTAL [Concomitant]
  3. MIRTAZAPINE [Concomitant]
  4. DILATIAZEM HYDROCHLORIDE [Concomitant]
  5. ZOLPIDEM TARTRATE [Concomitant]
  6. PREDNISONE [Concomitant]

REACTIONS (4)
  - ANGINA PECTORIS [None]
  - CEREBROVASCULAR ACCIDENT [None]
  - HAEMOGLOBIN DECREASED [None]
  - HYPERTENSION [None]
